FAERS Safety Report 14012681 (Version 1)
Quarter: 2017Q3

REPORT INFORMATION
  Report Type: Spontaneous
  Country: FR (occurrence: FR)
  Receive Date: 20170926
  Receipt Date: 20170926
  Transmission Date: 20171128
  Serious: Yes (Hospitalization)
  Sender: FDA-Public Use
  Company Number: FR-LPDUSPRD-20171313

PATIENT
  Age: 64 Year
  Sex: Female

DRUGS (1)
  1. VENOFER [Suspect]
     Active Substance: IRON SUCROSE
     Dosage: 300 MG
     Route: 041
     Dates: start: 20170811

REACTIONS (8)
  - Oedema [None]
  - Burning sensation [Unknown]
  - Pain [Recovered/Resolved]
  - Paraesthesia [Recovered/Resolved]
  - Extravasation [Unknown]
  - Feeling hot [Unknown]
  - Venous thrombosis [Unknown]
  - Thrombophlebitis [None]

NARRATIVE: CASE EVENT DATE: 20170811
